FAERS Safety Report 7532462-5 (Version None)
Quarter: 2011Q2

REPORT INFORMATION
  Report Type: 
  Country: None (occurrence: None)
  Receive Date: 20110601
  Receipt Date: 20110519
  Transmission Date: 20111010
  Serious: Yes (Hospitalization, Other)
  Sender: FDA-Public Use
  Company Number: 2011002337

PATIENT
  Age: 60 Year
  Sex: Male

DRUGS (3)
  1. TARCEVA [Suspect]
     Indication: NON-SMALL CELL LUNG CANCER STAGE IV
     Dosage: 150MG, UID/QD, ORAL
     Route: 048
     Dates: start: 20100721, end: 20110501
  2. ZIAC [Concomitant]
  3. DOCETAXEL [Concomitant]

REACTIONS (6)
  - ALOPECIA [None]
  - NEUTROPENIA [None]
  - DIARRHOEA [None]
  - MALAISE [None]
  - REFUSAL OF TREATMENT BY PATIENT [None]
  - BLOOD PRESSURE DECREASED [None]
